FAERS Safety Report 16837813 (Version 1)
Quarter: 2019Q3

REPORT INFORMATION
  Report Type: Spontaneous
  Country: BR (occurrence: BR)
  Receive Date: 20190923
  Receipt Date: 20190923
  Transmission Date: 20191005
  Serious: Yes (Other)
  Sender: FDA-Public Use
  Company Number: BR-ABBVIE-19K-020-2929711-00

PATIENT

DRUGS (3)
  1. HUMIRA [Suspect]
     Active Substance: ADALIMUMAB
     Indication: PRODUCT USED FOR UNKNOWN INDICATION
     Route: 058
  2. INFLIXIMAB [Suspect]
     Active Substance: INFLIXIMAB
     Indication: PRODUCT USED FOR UNKNOWN INDICATION
     Route: 065
  3. PREDNISONE. [Suspect]
     Active Substance: PREDNISONE
     Indication: PRODUCT USED FOR UNKNOWN INDICATION
     Route: 065

REACTIONS (10)
  - Joint tuberculosis [Unknown]
  - Lung disorder [Unknown]
  - Therapeutic product effect incomplete [Unknown]
  - Abscess limb [Unknown]
  - Vomiting [Unknown]
  - Haemangioma [Unknown]
  - Pyrexia [Unknown]
  - Neoplasm [Unknown]
  - Renal impairment [Unknown]
  - Liver disorder [Unknown]
